FAERS Safety Report 15067095 (Version 1)
Quarter: 2018Q2

REPORT INFORMATION
  Report Type: Spontaneous
  Country: CA (occurrence: CA)
  Receive Date: 20180626
  Receipt Date: 20180626
  Transmission Date: 20180711
  Serious: Yes (Other)
  Sender: FDA-Public Use
  Company Number: CA-PFIZER INC-2018206611

PATIENT
  Age: 44 Year
  Sex: Female

DRUGS (4)
  1. FASLODEX [Suspect]
     Active Substance: FULVESTRANT
     Indication: BREAST CANCER
     Dosage: UNK
  2. ZOLADEX [Concomitant]
     Active Substance: GOSERELIN ACETATE
     Indication: BREAST CANCER
     Dosage: 36 UG/ML, EVERY 28 DAYS
     Route: 058
  3. IBRANCE [Suspect]
     Active Substance: PALBOCICLIB
     Indication: BREAST CANCER
     Dosage: 125 MG, CYCLIC ( 1X/DAY FOR 21 DAYS THEN 7 DAYS OFF)
     Route: 048
     Dates: start: 20170302
  4. LETROZOLE. [Suspect]
     Active Substance: LETROZOLE
     Indication: BREAST CANCER
     Dosage: 25 MG, DAILY
     Route: 048

REACTIONS (5)
  - Pain [Not Recovered/Not Resolved]
  - Neoplasm progression [Unknown]
  - Bronchiectasis [Unknown]
  - Fatigue [Unknown]
  - Pleural effusion [Unknown]
